FAERS Safety Report 11124551 (Version 2)
Quarter: 2015Q2

REPORT INFORMATION
  Report Type: Spontaneous
  Country: IT (occurrence: FR)
  Receive Date: 20150520
  Receipt Date: 20150522
  Transmission Date: 20150821
  Serious: Yes (Hospitalization)
  Sender: FDA-Public Use
  Company Number: FR-FRI-1000076790

PATIENT
  Age: 88 Year
  Sex: Female

DRUGS (11)
  1. MEMANTINE [Suspect]
     Active Substance: MEMANTINE
     Dosage: 10 MG
     Route: 048
  2. MOXONIDINE [Suspect]
     Active Substance: MOXONIDINE
     Dosage: 0.4 MG
     Route: 048
     Dates: end: 201503
  3. HYDREA [Suspect]
     Active Substance: HYDROXYUREA
     Dosage: 500 MG
     Route: 048
  4. BIPRETERAX [Suspect]
     Active Substance: INDAPAMIDE\PERINDOPRIL
     Dosage: 10 MG / 2.5 MG
     Route: 048
     Dates: end: 201503
  5. DIFFU K [Suspect]
     Active Substance: POTASSIUM CHLORIDE
     Dosage: 600 MG
     Route: 048
     Dates: end: 201503
  6. MIANSERINE [Suspect]
     Active Substance: MIANSERIN HYDROCHLORIDE
     Dosage: 30 MG
     Route: 048
  7. KARDEGIC [Suspect]
     Active Substance: ASPIRIN LYSINE
     Dosage: 75 MG
     Route: 048
  8. FLECAINE [Suspect]
     Active Substance: FLECAINIDE
     Dosage: 100 MG
     Route: 048
  9. NEBIVOLOL [Suspect]
     Active Substance: NEBIVOLOL
     Dosage: 5 MG
     Route: 048
     Dates: end: 201503
  10. NEBIVOLOL [Suspect]
     Active Substance: NEBIVOLOL
     Dosage: 2.5 MG
     Route: 048
     Dates: start: 201503
  11. AXELER [Suspect]
     Active Substance: AMLODIPINE BESYLATE\OLMESARTAN MEDOXOMIL
     Dosage: 40 MG /10 MG
     Route: 048
     Dates: end: 201503

REACTIONS (3)
  - Craniocerebral injury [Recovered/Resolved]
  - Hypotension [Recovered/Resolved]
  - Fall [Recovered/Resolved]

NARRATIVE: CASE EVENT DATE: 20150304
